FAERS Safety Report 9710942 (Version 1)
Quarter: 2013Q4

REPORT INFORMATION
  Report Type: Spontaneous
  Country: US (occurrence: US)
  Receive Date: 20131126
  Receipt Date: 20131126
  Transmission Date: 20140711
  Serious: Yes (Other)
  Sender: FDA-Public Use
  Company Number: US-JNJFOC-20131110901

PATIENT
  Sex: Female

DRUGS (1)
  1. XARELTO [Suspect]
     Indication: PRODUCT USED FOR UNKNOWN INDICATION
     Route: 048
     Dates: start: 201308

REACTIONS (4)
  - Cataract [Unknown]
  - Adverse event [Unknown]
  - Foreign body sensation in eyes [Not Recovered/Not Resolved]
  - Visual acuity reduced [Not Recovered/Not Resolved]
